FAERS Safety Report 7428545-0 (Version None)
Quarter: 2011Q2

REPORT INFORMATION
  Report Type: 
  Country: None (occurrence: None)
  Receive Date: 20110412
  Receipt Date: 20110324
  Transmission Date: 20111010
  Serious: Yes (Other)
  Sender: FDA-Public Use
  Company Number: 2011SP013754

PATIENT
  Age: 71 Year
  Sex: Female

DRUGS (8)
  1. DOXYCYCLINE [Suspect]
     Indication: PRODUCT USED FOR UNKNOWN INDICATION
     Dates: start: 20110201, end: 20110201
  2. ZETIA [Concomitant]
  3. GLUCOSAMINE SULPHATE [Concomitant]
  4. NASONEX [Suspect]
     Indication: PRODUCT USED FOR UNKNOWN INDICATION
     Dosage: 1 DF;QD;NAS
     Route: 045
     Dates: start: 20100601
  5. ADVAIR DISKUS 100/50 [Suspect]
     Indication: ASTHMA
     Dosage: 1 DF;QD
     Dates: start: 20100101
  6. THERA TEARS [Concomitant]
  7. SIMVASTATIN [Concomitant]
  8. GUAIFENESIN [Concomitant]

REACTIONS (8)
  - DRUG INEFFECTIVE [None]
  - APHASIA [None]
  - DYSPHONIA [None]
  - THROAT IRRITATION [None]
  - PRODUCT QUALITY ISSUE [None]
  - COUGH [None]
  - MUSCULAR WEAKNESS [None]
  - SENSATION OF FOREIGN BODY [None]
